FAERS Safety Report 5002797-9 (Version None)
Quarter: 2006Q2

REPORT INFORMATION
  Report Type: 
  Country: None (occurrence: None)
  Receive Date: 20060516
  Receipt Date: 20060428
  Transmission Date: 20061013
  Serious: Yes (Hospitalization)
  Sender: FDA-Public Use
  Company Number: PHNU2006DE01807

PATIENT
  Sex: Female

DRUGS (3)
  1. SANDIMMUNE [Suspect]
     Indication: APLASTIC ANAEMIA
     Dosage: 350 MG DAILY
     Dates: start: 20020101
  2. SANDIMMUNE [Suspect]
     Dosage: 25 MG, BID
     Route: 048
  3. SANDIMMUNE [Suspect]
     Dosage: 10 MG DAILY
     Route: 048

REACTIONS (2)
  - CONFUSIONAL STATE [None]
  - DELUSIONAL PERCEPTION [None]
